FAERS Safety Report 7694198-X (Version None)
Quarter: 2011Q3

REPORT INFORMATION
  Report Type: 
  Country: None (occurrence: None)
  Receive Date: 20110819
  Receipt Date: 20110816
  Transmission Date: 20111222
  Serious: Yes (Other)
  Sender: FDA-Public Use
  Company Number: AU-PFIZER INC-2011148121

PATIENT
  Age: 38 Year
  Sex: Male

DRUGS (3)
  1. LEXAPRO [Concomitant]
     Indication: DEPRESSION
     Dosage: 20MG EACH MORNING
     Dates: start: 20090910
  2. ZIPRASIDONE HYDROCHLORIDE [Suspect]
     Indication: SCHIZOPHRENIA
     Dosage: 40 MG, 2X/DAY
     Route: 048
     Dates: start: 20091013, end: 20091015
  3. ZIPRASIDONE HYDROCHLORIDE [Suspect]
     Dosage: 80 MG, 2X/DAY
     Route: 048
     Dates: start: 20091016, end: 20110601

REACTIONS (3)
  - DYSKINESIA [None]
  - OROPHARYNGEAL DISCOMFORT [None]
  - DYSPHAGIA [None]
